FAERS Safety Report 17734962 (Version 1)
Quarter: 2020Q2

REPORT INFORMATION
  Report Type: Spontaneous
  Country: US (occurrence: US)
  Receive Date: 20200501
  Receipt Date: 20200501
  Transmission Date: 20200714
  Serious: Yes (Hospitalization)
  Sender: FDA-Public Use
  Company Number: US-TORRENT-00010199

PATIENT
  Age: 44 Year
  Sex: Female

DRUGS (1)
  1. FLUOXETINE [Suspect]
     Active Substance: FLUOXETINE HYDROCHLORIDE
     Indication: PRODUCT USED FOR UNKNOWN INDICATION
     Dosage: UNKNOWN

REACTIONS (4)
  - Reversible cerebral vasoconstriction syndrome [Recovering/Resolving]
  - Ischaemic stroke [Recovering/Resolving]
  - Overdose [Recovering/Resolving]
  - Cerebrovascular accident [Recovering/Resolving]
